FAERS Safety Report 9711112 (Version 2)
Quarter: 2013Q4

REPORT INFORMATION
  Report Type: Spontaneous
  Country: US (occurrence: US)
  Receive Date: 20131126
  Receipt Date: 20131126
  Transmission Date: 20140711
  Serious: No
  Sender: FDA-Public Use
  Company Number: US-BRISTOL-MYERS SQUIBB COMPANY-19146968

PATIENT
  Age: 66 Year
  Sex: Female
  Weight: 63.94 kg

DRUGS (5)
  1. BYETTA PEN DISPOSABLE [Suspect]
     Indication: TYPE 2 DIABETES MELLITUS
     Dosage: START DT:2006 OR 2007?DURATION-6 OR 7YRS AGO?LOT NO:A972208A,STRENGTH:250MCG/ML 10MCG
     Route: 058
  2. METFORMIN [Concomitant]
  3. LISINOPRIL [Concomitant]
  4. CRESTOR [Concomitant]
  5. VERAPAMIL [Concomitant]

REACTIONS (4)
  - Drug ineffective [Unknown]
  - Weight decreased [Unknown]
  - Decreased appetite [Unknown]
  - Product quality issue [Unknown]
